FAERS Safety Report 25089363 (Version 1)
Quarter: 2025Q1

REPORT INFORMATION
  Report Type: Spontaneous
  Country: JP (occurrence: JP)
  Receive Date: 20250318
  Receipt Date: 20250318
  Transmission Date: 20250409
  Serious: Yes (Other)
  Sender: MDD OPERATIONS
  Company Number: JP-ZAMBON-202403383COR

PATIENT
  Sex: Male

DRUGS (11)
  1. SAFINAMIDE [Suspect]
     Active Substance: SAFINAMIDE
     Indication: Parkinson^s disease
     Route: 048
     Dates: start: 20230817
  2. ITOPRIDE [Concomitant]
     Active Substance: ITOPRIDE
     Indication: Dyspepsia
     Route: 048
     Dates: start: 20230406
  3. CHOLINE ALFOSCERATE [Concomitant]
     Active Substance: CHOLINE ALFOSCERATE
     Indication: Cognitive disorder
     Route: 048
     Dates: start: 20230406
  4. PROPRANOLOL HYDROCHLORIDE [Concomitant]
     Active Substance: PROPRANOLOL HYDROCHLORIDE
     Indication: Hypertension
     Route: 048
     Dates: start: 20230406
  5. MAGNESIUM HYDROXIDE [Concomitant]
     Active Substance: MAGNESIUM HYDROXIDE
     Indication: Constipation
     Route: 048
     Dates: start: 20230615
  6. Requip PD [Concomitant]
     Indication: Parkinson^s disease
     Route: 048
     Dates: start: 20230406, end: 20231215
  7. Requip PD [Concomitant]
     Route: 048
     Dates: start: 20231206
  8. Restorn [Concomitant]
     Indication: Constipation
     Route: 048
     Dates: start: 20220630
  9. Sinil Sylimarin [Concomitant]
     Indication: Constipation
     Route: 048
     Dates: start: 20220324
  10. CARBIDOPA\LEVODOPA [Concomitant]
     Active Substance: CARBIDOPA\LEVODOPA
     Indication: Parkinson^s disease
     Dosage: EACH DF CONTAINS 25-100
     Route: 048
     Dates: start: 20230406, end: 20230614
  11. CARBIDOPA\LEVODOPA [Concomitant]
     Active Substance: CARBIDOPA\LEVODOPA
     Dosage: EACH DF CONTAINS 25-100
     Route: 048
     Dates: start: 20230615

REACTIONS (3)
  - Parkinson^s disease [Not Recovered/Not Resolved]
  - Ejaculation delayed [Unknown]
  - Libido decreased [Unknown]

NARRATIVE: CASE EVENT DATE: 20240111
